FAERS Safety Report 5287585-0 (Version None)
Quarter: 2007Q1

REPORT INFORMATION
  Report Type: 
  Country: None (occurrence: None)
  Receive Date: 20070126
  Receipt Date: 20050829
  Transmission Date: 20070707
  Serious: No
  Sender: FDA-Public Use
  Company Number: 2006CT001154

PATIENT
  Age: 52 Year
  Sex: Female
  Weight: 167.6 kg

DRUGS (14)
  1. VENTAVIS [Suspect]
     Indication: PULMONARY HYPERTENSION
     Dosage: 2.5 UG 6XD INH
     Route: 055
     Dates: start: 20050803, end: 20050823
  2. TRACLEER [Concomitant]
  3. LEVOTHROID [Concomitant]
  4. FUROSEMIDE [Concomitant]
  5. RANITIDINE [Concomitant]
  6. KLOR-CON [Concomitant]
  7. WARFARIN SODIUM [Concomitant]
  8. PREDNISONE TAB [Concomitant]
  9. ALLOPURINOL [Concomitant]
  10. METOLAZONE [Concomitant]
  11. BUDESONIDE [Concomitant]
  12. XOPENEX [Concomitant]
  13. FLECAINIDE ACETATE [Concomitant]
  14. POTASSIUM CHLORIDE [Concomitant]

REACTIONS (3)
  - COUGH [None]
  - FATIGUE [None]
  - GAIT DISTURBANCE [None]
